FAERS Safety Report 7920012-0 (Version None)
Quarter: 2011Q4

REPORT INFORMATION
  Report Type: 
  Country: None (occurrence: None)
  Receive Date: 20111117
  Receipt Date: 20111111
  Transmission Date: 20120403
  Serious: Yes (Other)
  Sender: FDA-Public Use
  Company Number: US-BAYER-2011-110462

PATIENT
  Age: 76 Year
  Sex: Female
  Weight: 78 kg

DRUGS (10)
  1. NAPROXEN (ALEVE) [Suspect]
     Dosage: 1 DF, QD
     Route: 048
     Dates: start: 20111001
  2. THYROID TAB [Concomitant]
  3. B COMPLEX [VITAMIN-B-KOMPLEX STANDARD] [Concomitant]
  4. URINARY INCONTINENCE MEDICATION [Concomitant]
  5. CALCIUM [Concomitant]
  6. RITALIN [Concomitant]
  7. ASPIRIN [Concomitant]
  8. ANTIHYPERTENSIVES [Concomitant]
  9. COQ10 [Concomitant]
  10. LASIX [Concomitant]

REACTIONS (1)
  - PETECHIAE [None]
